FAERS Safety Report 8819722 (Version 2)
Quarter: 2015Q1

REPORT INFORMATION
  Report Type: Report from Study
  Country: US (occurrence: US)
  Receive Date: 20121001
  Receipt Date: 20150206
  Transmission Date: 20150721
  Serious: Yes (Death)
  Sender: FDA-Public Use
  Company Number: US-ROCHE-1129585

PATIENT
  Sex: Female

DRUGS (7)
  1. HERCEPTIN [Suspect]
     Active Substance: TRASTUZUMAB
     Dosage: MAINTAINANCE DOSE
     Route: 042
  2. TAXOTERE [Concomitant]
     Active Substance: DOCETAXEL
  3. NAVELBINE [Concomitant]
     Active Substance: VINORELBINE TARTRATE
  4. HERCEPTIN [Suspect]
     Active Substance: TRASTUZUMAB
     Indication: BREAST CANCER FEMALE
     Dosage: DOSE: 285 MG ?LOADING DOSE
     Route: 042
     Dates: start: 19981210
  5. PACLITAXEL. [Concomitant]
     Active Substance: PACLITAXEL
  6. TAXOL [Concomitant]
     Active Substance: PACLITAXEL
     Route: 065
  7. 5-FU [Concomitant]
     Active Substance: FLUOROURACIL

REACTIONS (8)
  - Cough [Unknown]
  - Dyspnoea [Unknown]
  - Hypoaesthesia [Unknown]
  - Chills [Unknown]
  - Constipation [Unknown]
  - Insomnia [Unknown]
  - Oedema [Unknown]
  - Death [Fatal]
